FAERS Safety Report 9886015 (Version 1)
Quarter: 2014Q1

REPORT INFORMATION
  Report Type: Spontaneous
  Country: FI (occurrence: FI)
  Receive Date: 20140210
  Receipt Date: 20140210
  Transmission Date: 20141002
  Serious: Yes (Life-Threatening, Hospitalization)
  Sender: FDA-Public Use
  Company Number: FI-GLAXOSMITHKLINE-B0967471A

PATIENT
  Age: 34 Year
  Sex: Female

DRUGS (5)
  1. ZINACEF [Suspect]
     Indication: ANTIBIOTIC PROPHYLAXIS
     Route: 042
     Dates: start: 20140122, end: 20140122
  2. AZATHIOPRINE [Concomitant]
     Indication: COLITIS ULCERATIVE
     Dosage: 50MG THREE TIMES PER DAY
     Route: 048
     Dates: start: 20121016
  3. ASACOL [Concomitant]
     Indication: COLITIS ULCERATIVE
     Dosage: 800MG THREE TIMES PER DAY
     Route: 048
     Dates: start: 200508
  4. PANADOL FORTE [Concomitant]
     Indication: PAIN PROPHYLAXIS
     Dates: start: 20140122
  5. MIDAZOLAM [Concomitant]
     Indication: ANAESTHETIC PREMEDICATION
     Route: 042
     Dates: start: 20140122

REACTIONS (5)
  - Urticaria [Recovered/Resolved]
  - Swelling face [Recovered/Resolved]
  - Hypotension [Recovered/Resolved]
  - Anxiety [Recovered/Resolved]
  - Confusional state [Recovered/Resolved]
